FAERS Safety Report 25683271 (Version 1)
Quarter: 2025Q3

REPORT INFORMATION
  Report Type: Spontaneous
  Country: EU (occurrence: EU)
  Receive Date: 20250814
  Receipt Date: 20250814
  Transmission Date: 20251020
  Serious: Yes (Death)
  Sender: MYLAN
  Company Number: None

PATIENT
  Age: 70 Year
  Sex: Female

DRUGS (8)
  1. TRAMADOL [Suspect]
     Active Substance: TRAMADOL
     Indication: Product used for unknown indication
  2. TRAMADOL [Suspect]
     Active Substance: TRAMADOL
     Route: 048
  3. TRAMADOL [Suspect]
     Active Substance: TRAMADOL
     Route: 048
  4. TRAMADOL [Suspect]
     Active Substance: TRAMADOL
  5. TRIMEPRAZINE [Suspect]
     Active Substance: TRIMEPRAZINE
     Indication: Product used for unknown indication
  6. TRIMEPRAZINE [Suspect]
     Active Substance: TRIMEPRAZINE
     Route: 048
  7. TRIMEPRAZINE [Suspect]
     Active Substance: TRIMEPRAZINE
     Route: 048
  8. TRIMEPRAZINE [Suspect]
     Active Substance: TRIMEPRAZINE

REACTIONS (2)
  - Death [Fatal]
  - Toxicity to various agents [Fatal]

NARRATIVE: CASE EVENT DATE: 20230101
